FAERS Safety Report 8911811 (Version 1)
Quarter: 2012Q4

REPORT INFORMATION
  Report Type: 
  Country: US (occurrence: US)
  Receive Date: 20121115
  Receipt Date: 20121115
  Transmission Date: 20130627
  Serious: Yes (Other)
  Sender: FDA-Public Use
  Company Number: US-GLAXOSMITHKLINE-A1001080A

PATIENT
  Age: 47 Year
  Sex: Female

DRUGS (5)
  1. PROMACTA [Suspect]
     Indication: PRODUCT USED FOR UNKNOWN INDICATION
     Dosage: 25MG Per day
     Route: 048
  2. ROXICODONE [Concomitant]
  3. VALIUM [Concomitant]
  4. PRILOSEC [Concomitant]
  5. CIPRO [Concomitant]

REACTIONS (1)
  - Kidney infection [Unknown]
